FAERS Safety Report 8347616-8 (Version None)
Quarter: 2012Q2

REPORT INFORMATION
  Report Type: 
  Country: None (occurrence: None)
  Receive Date: 20120509
  Receipt Date: 20120425
  Transmission Date: 20120825
  Serious: Yes (Hospitalization, Other)
  Sender: FDA-Public Use
  Company Number: GB-ELI_LILLY_AND_COMPANY-GB201201008803

PATIENT
  Age: 49 Year
  Sex: Female
  Weight: 71 kg

DRUGS (10)
  1. MULTI-VITAMIN [Concomitant]
     Indication: ALCOHOL USE
     Dosage: UNK
     Route: 048
     Dates: start: 20111205
  2. PABRINEX                           /00636301/ [Concomitant]
     Indication: ALCOHOL USE
     Dosage: UNK
     Dates: start: 20111203, end: 20111205
  3. THIAMINE HCL [Concomitant]
     Indication: ALCOHOL USE
     Dosage: 200 MG, UNK
     Route: 048
     Dates: start: 20111205
  4. PROZAC [Suspect]
     Dosage: UNK, QOD
     Dates: start: 20120116
  5. TRAMADOL HYDROCHLORIDE [Concomitant]
     Indication: PAIN
     Dosage: 100 MG, QID
     Route: 048
     Dates: start: 20111203
  6. TRAMADOL HYDROCHLORIDE [Concomitant]
     Dosage: 50 MG, PRN
     Route: 048
     Dates: start: 20120112, end: 20120117
  7. TRAMADOL HYDROCHLORIDE [Concomitant]
     Dosage: 100 MG, UNKNOWN
     Route: 048
     Dates: start: 20120118
  8. ACETAMINOPHEN [Concomitant]
     Indication: PAIN
     Dosage: 1 G, QD
     Route: 048
  9. PROZAC [Suspect]
     Dosage: UNK
     Dates: start: 20110117, end: 20111201
  10. FOLIC ACID [Concomitant]

REACTIONS (3)
  - HYPOGLYCAEMIA [None]
  - CONVULSION [None]
  - FEMORAL NECK FRACTURE [None]
